FAERS Safety Report 19202069 (Version 3)
Quarter: 2021Q2

REPORT INFORMATION
  Report Type: Spontaneous
  Country: CH (occurrence: CH)
  Receive Date: 20210502
  Receipt Date: 20210627
  Transmission Date: 20210717
  Serious: Yes (Life-Threatening)
  Sender: FDA-Public Use
  Company Number: NVSC2021CH097672

PATIENT
  Age: 63 Year
  Sex: Female

DRUGS (8)
  1. MIDOSTAURIN [Suspect]
     Active Substance: MIDOSTAURIN
     Dosage: 100 MG, QD
     Route: 065
     Dates: start: 20210605, end: 20210618
  2. CYTARABINE. [Suspect]
     Active Substance: CYTARABINE
     Indication: ACUTE MYELOID LEUKAEMIA
     Dosage: 388 MG, QD
     Route: 065
     Dates: start: 20210414, end: 20210420
  3. CYTARABINE. [Suspect]
     Active Substance: CYTARABINE
     Dosage: 3880 MG, QD
     Route: 065
     Dates: start: 20210529, end: 20210603
  4. DAUNORUBICIN [Suspect]
     Active Substance: DAUNORUBICIN
     Indication: ACUTE MYELOID LEUKAEMIA
     Dosage: 124.16 MG, QD
     Route: 065
     Dates: start: 20210414, end: 20210416
  5. DAUNORUBICIN [Suspect]
     Active Substance: DAUNORUBICIN
     Dosage: 124.16 UNK
     Route: 065
     Dates: start: 20210529, end: 20210529
  6. MIDOSTAURIN [Suspect]
     Active Substance: MIDOSTAURIN
     Indication: ACUTE MYELOID LEUKAEMIA
     Dosage: 100 MG, QD
     Route: 065
     Dates: start: 20210421, end: 20210422
  7. DAUNORUBICIN [Suspect]
     Active Substance: DAUNORUBICIN
     Dosage: 124.16 MG, QD
     Route: 065
     Dates: start: 20210531, end: 20210531
  8. DAUNORUBICIN [Suspect]
     Active Substance: DAUNORUBICIN
     Dosage: 124.16 MG, QD
     Route: 065
     Dates: start: 20210602, end: 20210602

REACTIONS (9)
  - Ileus [Not Recovered/Not Resolved]
  - Abdominal rigidity [Not Recovered/Not Resolved]
  - Enterocolitis [Not Recovered/Not Resolved]
  - Pyrexia [Not Recovered/Not Resolved]
  - Respiratory failure [Not Recovered/Not Resolved]
  - Enteritis [Not Recovered/Not Resolved]
  - Abdominal pain [Not Recovered/Not Resolved]
  - Diarrhoea [Not Recovered/Not Resolved]
  - Nausea [Not Recovered/Not Resolved]

NARRATIVE: CASE EVENT DATE: 20210422
